FAERS Safety Report 8293794-9 (Version None)
Quarter: 2012Q2

REPORT INFORMATION
  Report Type: 
  Country: None (occurrence: None)
  Receive Date: 20120418
  Receipt Date: 20120412
  Transmission Date: 20120825
  Serious: Yes (Hospitalization, Other)
  Sender: FDA-Public Use
  Company Number: US-BAYER-2012-017036

PATIENT
  Age: 34 Year
  Sex: Female
  Weight: 79.365 kg

DRUGS (5)
  1. LORTAB [Concomitant]
     Indication: PAIN
     Dosage: 7.5 MG, UNK
     Route: 048
     Dates: end: 20110304
  2. DROSPIRENONE AND ETHINYL ESTRADIOL [Suspect]
     Indication: CONTRACEPTION
     Dosage: UNK
     Route: 048
     Dates: start: 20101201, end: 20110301
  3. PRECARE [Concomitant]
  4. ZANAFLEX [Concomitant]
     Dosage: UNK
  5. YAZ [Suspect]
     Dosage: UNK
     Dates: start: 20090801, end: 20101201

REACTIONS (3)
  - RENAL VEIN THROMBOSIS [None]
  - MENTAL DISORDER [None]
  - DEEP VEIN THROMBOSIS [None]
